FAERS Safety Report 7755378-8 (Version None)
Quarter: 2011Q3

REPORT INFORMATION
  Report Type: 
  Country: None (occurrence: None)
  Receive Date: 20110916
  Receipt Date: 20110906
  Transmission Date: 20111222
  Serious: Yes (Hospitalization)
  Sender: FDA-Public Use
  Company Number: US-JNJFOC-20110904417

PATIENT
  Sex: Male

DRUGS (5)
  1. FENTANYL [Suspect]
     Indication: PAIN
     Route: 062
  2. FENTANYL [Suspect]
     Route: 062
     Dates: end: 20090101
  3. FENTANYL [Suspect]
     Route: 062
  4. OXYCONTIN [Concomitant]
     Indication: PAIN
     Route: 048
  5. FENTANYL [Suspect]
     Route: 062

REACTIONS (8)
  - DRY SKIN [None]
  - PRODUCT QUALITY ISSUE [None]
  - NAUSEA [None]
  - DRUG EFFECT INCREASED [None]
  - WRONG TECHNIQUE IN DRUG USAGE PROCESS [None]
  - PAIN [None]
  - TREATMENT NONCOMPLIANCE [None]
  - HOSPITALISATION [None]
